FAERS Safety Report 4586233-2 (Version None)
Quarter: 2005Q1

REPORT INFORMATION
  Report Type: 
  Country: None (occurrence: None)
  Receive Date: 20050125
  Receipt Date: 20041020
  Transmission Date: 20050727
  Serious: No
  Sender: FDA-Public Use
  Company Number: USA041081775

PATIENT
  Age: 74 Year
  Sex: Female
  Weight: 64 kg

DRUGS (5)
  1. FORTEO [Suspect]
     Indication: OSTEOPOROSIS
     Dosage: 20 UG/1 DAY
     Dates: start: 20041020
  2. PROCARDIA (NIFEDIPINE PA) [Concomitant]
  3. SYNTHROID [Concomitant]
  4. PRILOSEC (OMEPRAZOLE RATIOPHARM) [Concomitant]
  5. CALCIUM WITH VITAMIN D [Concomitant]

REACTIONS (3)
  - FEELING HOT [None]
  - HEART RATE INCREASED [None]
  - SENSATION OF PRESSURE [None]
